FAERS Safety Report 10965113 (Version 16)
Quarter: 2016Q2

REPORT INFORMATION
  Report Type: Report from Study
  Country: AU (occurrence: AU)
  Receive Date: 20150330
  Receipt Date: 20160601
  Transmission Date: 20160815
  Serious: Yes (Hospitalization)
  Sender: FDA-Public Use
  Company Number: AU-ROCHE-1555618

PATIENT
  Age: 39 Year
  Sex: Female
  Weight: 65.7 kg

DRUGS (70)
  1. VINCRISTINE [Suspect]
     Active Substance: VINCRISTINE
     Indication: NON-HODGKIN^S LYMPHOMA
     Dosage: MOST RECENT DOSE PRIOR TO AE : 21/NOV/2014 AT 14.35
     Route: 065
     Dates: start: 20141010
  2. TEMAZEPAM. [Concomitant]
     Active Substance: TEMAZEPAM
     Route: 065
     Dates: start: 20141130, end: 20141130
  3. PANADOL (AUSTRALIA) [Concomitant]
     Indication: PROPHYLAXIS
     Route: 065
     Dates: start: 20141010, end: 20141010
  4. CETRIZINE [Concomitant]
     Active Substance: CETIRIZINE HYDROCHLORIDE
     Indication: PROPHYLAXIS
     Route: 065
     Dates: start: 20141010, end: 20141010
  5. CETRIZINE [Concomitant]
     Active Substance: CETIRIZINE HYDROCHLORIDE
     Route: 065
     Dates: start: 20141017, end: 20141017
  6. HYDROCORTISONE. [Concomitant]
     Active Substance: HYDROCORTISONE
     Route: 065
     Dates: start: 20141121, end: 20141121
  7. TAZOCIN [Concomitant]
     Active Substance: PIPERACILLIN SODIUM\TAZOBACTAM SODIUM
     Route: 065
     Dates: start: 20141126, end: 20141129
  8. PANADEINE FORTE [Concomitant]
     Active Substance: ACETAMINOPHEN\CODEINE PHOSPHATE
     Indication: BONE PAIN
     Route: 065
     Dates: start: 20141025, end: 20141114
  9. BACTRIM [Suspect]
     Active Substance: SULFAMETHOXAZOLE\TRIMETHOPRIM
     Indication: PRODUCT USED FOR UNKNOWN INDICATION
     Route: 065
     Dates: start: 20140911, end: 20141217
  10. VALACICLOVIR [Concomitant]
     Active Substance: VALACYCLOVIR HYDROCHLORIDE
     Indication: TINNITUS
     Route: 065
     Dates: start: 20150108, end: 20150213
  11. TEMAZEPAM. [Concomitant]
     Active Substance: TEMAZEPAM
     Route: 065
     Dates: start: 20141124, end: 20141124
  12. PANADOL (AUSTRALIA) [Concomitant]
     Route: 065
     Dates: start: 20141031, end: 20141031
  13. PANADOL (AUSTRALIA) [Concomitant]
     Route: 065
     Dates: start: 20141123, end: 20141124
  14. MAXOLON [Concomitant]
     Active Substance: METOCLOPRAMIDE HYDROCHLORIDE
     Indication: NAUSEA
     Route: 065
     Dates: start: 20141031, end: 20141031
  15. GLYCERINE [Concomitant]
     Active Substance: GLYCERIN
     Indication: CONSTIPATION
     Route: 065
     Dates: start: 20141017, end: 20141017
  16. PANTOPRAZOLE [Concomitant]
     Active Substance: PANTOPRAZOLE SODIUM
     Indication: DYSPEPSIA
     Route: 065
     Dates: start: 20141013, end: 20141217
  17. PEGFILGRASTIM [Concomitant]
     Active Substance: PEGFILGRASTIM
     Indication: PROPHYLAXIS
     Route: 065
     Dates: start: 20141103, end: 20141103
  18. COLOXYL WITH SENNA [Concomitant]
     Active Substance: DOCUSATE\SENNOSIDES
  19. PREDNISONE. [Suspect]
     Active Substance: PREDNISONE
     Indication: NON-HODGKIN^S LYMPHOMA
     Dosage: MOST RECENT DOSE PRIOR TO AE : 25/NOV/2014
     Route: 048
     Dates: start: 20141010
  20. BACTRIM [Suspect]
     Active Substance: SULFAMETHOXAZOLE\TRIMETHOPRIM
     Route: 065
  21. CYMBALTA [Suspect]
     Active Substance: DULOXETINE HYDROCHLORIDE
     Indication: ANXIETY
     Route: 065
     Dates: start: 2012, end: 20150423
  22. VALACICLOVIR [Concomitant]
     Active Substance: VALACYCLOVIR HYDROCHLORIDE
     Dosage: INFECTIVE PROPYLAXSIS
     Route: 065
     Dates: start: 20140911, end: 20141217
  23. NORMAL SALINE [Concomitant]
     Active Substance: SODIUM CHLORIDE
     Indication: PYREXIA
     Dosage: INDICATION: TLS PROPHYLAXIS
     Route: 065
     Dates: start: 20141013, end: 20141013
  24. NORMAL SALINE [Concomitant]
     Active Substance: SODIUM CHLORIDE
     Route: 065
     Dates: start: 20141126, end: 20141128
  25. PANADOL (AUSTRALIA) [Concomitant]
     Route: 065
     Dates: start: 20141126, end: 20141130
  26. CETRIZINE [Concomitant]
     Active Substance: CETIRIZINE HYDROCHLORIDE
     Route: 065
     Dates: start: 20141028, end: 20141028
  27. CETRIZINE [Concomitant]
     Active Substance: CETIRIZINE HYDROCHLORIDE
     Route: 065
     Dates: start: 20141121, end: 20141121
  28. HYDROCORTISONE. [Concomitant]
     Active Substance: HYDROCORTISONE
     Indication: PROPHYLAXIS
     Route: 065
     Dates: start: 20141010, end: 20141010
  29. AUGMENTIN DUO FORTE [Concomitant]
     Active Substance: AMOXICILLIN\CLAVULANATE POTASSIUM
     Indication: FEBRILE NEUTROPENIA
     Route: 065
     Dates: start: 20141025, end: 20141103
  30. VENETOCLAX [Suspect]
     Active Substance: VENETOCLAX
     Indication: NON-HODGKIN^S LYMPHOMA
     Dosage: MOST RECENT DOSE PRIOR TO AE : 10/DEC/2014,
     Route: 048
     Dates: start: 20141013
  31. TEMAZEPAM. [Concomitant]
     Active Substance: TEMAZEPAM
     Indication: INSOMNIA
     Route: 065
     Dates: start: 20150114, end: 20150114
  32. TARGIN [Concomitant]
     Active Substance: NALOXONE HYDROCHLORIDE\OXYCODONE HYDROCHLORIDE
     Indication: POST LUMBAR PUNCTURE SYNDROME
     Route: 065
     Dates: start: 20150115, end: 20150116
  33. NORMAL SALINE [Concomitant]
     Active Substance: SODIUM CHLORIDE
     Indication: POST LUMBAR PUNCTURE SYNDROME
     Route: 065
     Dates: start: 20150113, end: 20150114
  34. HYDROCORTISONE. [Concomitant]
     Active Substance: HYDROCORTISONE
     Route: 065
     Dates: start: 20141028, end: 20141028
  35. MAXOLON [Concomitant]
     Active Substance: METOCLOPRAMIDE HYDROCHLORIDE
     Indication: PROPHYLAXIS OF NAUSEA AND VOMITING
     Route: 065
     Dates: start: 20141010, end: 20141217
  36. MAXOLON [Concomitant]
     Active Substance: METOCLOPRAMIDE HYDROCHLORIDE
     Route: 065
     Dates: start: 20141023, end: 20141023
  37. MAXOLON [Concomitant]
     Active Substance: METOCLOPRAMIDE HYDROCHLORIDE
     Route: 065
     Dates: start: 20141121, end: 20141121
  38. TAZOCIN [Concomitant]
     Active Substance: PIPERACILLIN SODIUM\TAZOBACTAM SODIUM
     Indication: PYREXIA
     Route: 065
     Dates: start: 20141123, end: 20141124
  39. LORAZEPAM. [Concomitant]
     Active Substance: LORAZEPAM
     Indication: ANXIETY
     Route: 065
     Dates: start: 201504, end: 201511
  40. PANADOL (AUSTRALIA) [Concomitant]
     Route: 065
     Dates: start: 20141028, end: 20141028
  41. CETRIZINE [Concomitant]
     Active Substance: CETIRIZINE HYDROCHLORIDE
     Route: 065
     Dates: start: 20141031, end: 20141031
  42. DEXTROSE. [Concomitant]
     Active Substance: DEXTROSE
     Dosage: INDICATION: TLS PROPHYLAXIS
     Route: 065
     Dates: start: 20141013, end: 20141013
  43. ZOFRAN [Concomitant]
     Active Substance: ONDANSETRON HYDROCHLORIDE
     Indication: PROPHYLAXIS OF NAUSEA AND VOMITING
     Route: 065
     Dates: start: 20141031, end: 20141031
  44. ZOFRAN [Concomitant]
     Active Substance: ONDANSETRON HYDROCHLORIDE
     Route: 065
     Dates: start: 20141121, end: 20141122
  45. PEGFILGRASTIM [Concomitant]
     Active Substance: PEGFILGRASTIM
     Route: 065
     Dates: start: 20141124, end: 20141124
  46. ENOXAPARIN [Concomitant]
     Active Substance: ENOXAPARIN
     Dosage: DVT PROPYLAXSIS
     Route: 065
     Dates: start: 20141124, end: 20141124
  47. CYCLOPHOSPHAMIDE. [Suspect]
     Active Substance: CYCLOPHOSPHAMIDE
     Indication: NON-HODGKIN^S LYMPHOMA
     Dosage: MOST RECENT DOSE PRIOR TO AE : 21/NOV/2014 AT 14.50
     Route: 065
     Dates: start: 20141010
  48. NORMAL SALINE [Concomitant]
     Active Substance: SODIUM CHLORIDE
     Route: 065
     Dates: start: 20141123, end: 20141125
  49. ENDONE [Concomitant]
     Active Substance: OXYCODONE HYDROCHLORIDE
     Indication: HEADACHE
     Route: 065
     Dates: start: 20141126, end: 20141126
  50. TRIMETHOPRIM + SULFA [Concomitant]
     Indication: PNEUMOCYSTIS JIROVECII PNEUMONIA
     Route: 065
     Dates: start: 20150525, end: 20150615
  51. DOXORUBICIN [Suspect]
     Active Substance: DOXORUBICIN
     Indication: NON-HODGKIN^S LYMPHOMA
     Dosage: MOST RECENT DOSE PRIOR TO AE : 21/NOV/2014 AT 14.20
     Route: 065
     Dates: start: 20141010
  52. NORMAL SALINE [Concomitant]
     Active Substance: SODIUM CHLORIDE
     Indication: DRUG-INDUCED LIVER INJURY
     Route: 065
     Dates: start: 20150505, end: 20150510
  53. LORAZEPAM. [Concomitant]
     Active Substance: LORAZEPAM
     Route: 065
     Dates: start: 20141125, end: 20141125
  54. ALLOPURINOL. [Concomitant]
     Active Substance: ALLOPURINOL
     Dosage: INDICATION : TUMOURLYSIS PROPHYLAXSIS
     Route: 065
     Dates: start: 20141007, end: 20141127
  55. TAZOCIN [Concomitant]
     Active Substance: PIPERACILLIN SODIUM\TAZOBACTAM SODIUM
     Indication: FEBRILE NEUTROPENIA
     Route: 065
     Dates: start: 20141022, end: 20141025
  56. FILGRASTIM [Concomitant]
     Active Substance: FILGRASTIM
     Indication: FEBRILE NEUTROPENIA
     Route: 065
     Dates: start: 20141023, end: 20141023
  57. ENDONE [Concomitant]
     Active Substance: OXYCODONE HYDROCHLORIDE
     Indication: HEADACHE
     Route: 065
     Dates: start: 20141110, end: 20141110
  58. RULIDE [Concomitant]
     Active Substance: ROXITHROMYCIN
     Indication: UPPER RESPIRATORY TRACT INFECTION
     Route: 065
     Dates: start: 20141231, end: 20150105
  59. OBINUTUZUMAB [Suspect]
     Active Substance: OBINUTUZUMAB
     Indication: NON-HODGKIN^S LYMPHOMA
     Dosage: MOST RECENT DOSE PRIOR TO AE : 21/NOV/2014 AT 10.05
     Route: 065
     Dates: start: 20141010
  60. PANADOL (AUSTRALIA) [Concomitant]
     Indication: PYREXIA
     Route: 065
     Dates: start: 20141017, end: 20141017
  61. PANADOL (AUSTRALIA) [Concomitant]
     Route: 065
     Dates: start: 20141023, end: 20141025
  62. PANADOL (AUSTRALIA) [Concomitant]
     Route: 065
     Dates: start: 20141121, end: 20141121
  63. HYDROCORTISONE. [Concomitant]
     Active Substance: HYDROCORTISONE
     Route: 065
     Dates: start: 20141017, end: 20141017
  64. HYDROCORTISONE. [Concomitant]
     Active Substance: HYDROCORTISONE
     Route: 065
     Dates: start: 20141031, end: 20141031
  65. ONDANSETRON [Concomitant]
     Active Substance: ONDANSETRON
     Indication: PROPHYLAXIS OF NAUSEA AND VOMITING
     Route: 065
     Dates: start: 20141010, end: 20141012
  66. MICROLAX (AUSTRALIA) [Concomitant]
     Indication: CONSTIPATION
     Dosage: ENEMA
     Route: 065
     Dates: start: 20141017, end: 20141017
  67. FILGRASTIM [Concomitant]
     Active Substance: FILGRASTIM
     Route: 065
     Dates: start: 20141025, end: 20141025
  68. LACTULOSE. [Concomitant]
     Active Substance: LACTULOSE
     Indication: CONSTIPATION
     Route: 065
     Dates: start: 20141024, end: 20141024
  69. SLOW K [Concomitant]
     Active Substance: POTASSIUM CHLORIDE
     Dosage: INDICATION: HYPOKALAEMIA PROPYLAXSIS
     Route: 065
     Dates: start: 20141025, end: 20141025
  70. AUGMENTIN DUO FORTE [Concomitant]
     Active Substance: AMOXICILLIN\CLAVULANATE POTASSIUM
     Indication: UPPER RESPIRATORY TRACT INFECTION
     Route: 065
     Dates: start: 20141231, end: 20150105

REACTIONS (1)
  - Drug-induced liver injury [Recovered/Resolved]

NARRATIVE: CASE EVENT DATE: 20150206
